FAERS Safety Report 12540579 (Version 2)
Quarter: 2016Q3

REPORT INFORMATION
  Report Type: Spontaneous
  Country: US (occurrence: US)
  Receive Date: 20160708
  Receipt Date: 20160901
  Transmission Date: 20161109
  Serious: Yes (Other)
  Sender: FDA-Public Use
  Company Number: US-TEVA-650295USA

PATIENT
  Sex: Female

DRUGS (1)
  1. ZECUITY [Suspect]
     Active Substance: SUMATRIPTAN SUCCINATE
     Indication: HEADACHE
     Route: 062

REACTIONS (11)
  - Application site paraesthesia [Recovered/Resolved]
  - Application site irritation [Recovered/Resolved]
  - Application site papules [Recovered/Resolved]
  - Incorrect drug administration duration [Unknown]
  - Application site urticaria [Recovered/Resolved]
  - Application site erythema [Recovered/Resolved]
  - Product adhesion issue [Unknown]
  - Drug ineffective [Unknown]
  - Application site pruritus [Recovered/Resolved]
  - Application site burn [Recovered/Resolved]
  - Application site vesicles [Recovered/Resolved]
